FAERS Safety Report 11658866 (Version 3)
Quarter: 2015Q4

REPORT INFORMATION
  Report Type: Spontaneous
  Country: US (occurrence: US)
  Receive Date: 20151026
  Receipt Date: 20151027
  Transmission Date: 20160304
  Serious: Yes (Other)
  Sender: FDA-Public Use
  Company Number: PHHY2015US134357

PATIENT
  Age: 30 Year
  Sex: Female

DRUGS (1)
  1. BUPROPION. [Suspect]
     Active Substance: BUPROPION
     Indication: PRODUCT USED FOR UNKNOWN INDICATION
     Route: 065

REACTIONS (6)
  - Electrocardiogram QT prolonged [Recovering/Resolving]
  - Metabolic acidosis [Recovered/Resolved]
  - Generalised tonic-clonic seizure [Unknown]
  - Mental status changes [Unknown]
  - Intentional overdose [Unknown]
  - Tachycardia [Recovering/Resolving]
